FAERS Safety Report 9643856 (Version 1)
Quarter: 2013Q4

REPORT INFORMATION
  Report Type: Spontaneous
  Country: US (occurrence: US)
  Receive Date: 20131024
  Receipt Date: 20131024
  Transmission Date: 20140711
  Serious: No
  Sender: FDA-Public Use
  Company Number: US-ASTRAZENECA-2013SE76330

PATIENT
  Age: 70 Year
  Sex: Female
  Weight: 54.4 kg

DRUGS (5)
  1. CRESTOR [Suspect]
     Indication: BLOOD CHOLESTEROL
     Route: 048
     Dates: start: 2012, end: 2012
  2. CRESTOR [Suspect]
     Indication: BLOOD CHOLESTEROL
     Route: 048
  3. COQ10 [Concomitant]
     Dosage: 100MG
  4. UNITHROID [Concomitant]
     Dosage: 75MG
  5. EYE DROPS [Concomitant]
     Indication: GLAUCOMA

REACTIONS (3)
  - Pain [Unknown]
  - Intentional drug misuse [Unknown]
  - Intentional drug misuse [Recovering/Resolving]
